FAERS Safety Report 20710467 (Version 1)
Quarter: 2022Q2

REPORT INFORMATION
  Report Type: Spontaneous
  Country: US (occurrence: None)
  Receive Date: 20220414
  Receipt Date: 20220414
  Transmission Date: 20220721
  Serious: No
  Sender: FDA-Public Use
  Company Number: None

PATIENT
  Age: 80 Year
  Sex: Female
  Weight: 63.5 kg

DRUGS (5)
  1. ATORVASTATIN [Suspect]
     Active Substance: ATORVASTATIN
     Indication: Blood cholesterol increased
     Dosage: OTHER QUANTITY : 1 PER DAY;?FREQUENCY : DAILY;?
     Route: 048
     Dates: start: 202009, end: 202112
  2. METOPROLOL [Concomitant]
     Active Substance: METOPROLOL
  3. LINZESS [Concomitant]
     Active Substance: LINACLOTIDE
  4. CLONAZEPAM [Concomitant]
     Active Substance: CLONAZEPAM
  5. Mirable [Concomitant]

REACTIONS (12)
  - Rash [None]
  - Insomnia [None]
  - Headache [None]
  - Pneumonia [None]
  - Flushing [None]
  - Myalgia [None]
  - Pain in extremity [None]
  - Deafness [None]
  - Tinnitus [None]
  - Meniere^s disease [None]
  - Diarrhoea [None]
  - Temporomandibular joint syndrome [None]
